FAERS Safety Report 8041686-2 (Version None)
Quarter: 2012Q1

REPORT INFORMATION
  Report Type: 
  Country: None (occurrence: None)
  Receive Date: 20120112
  Receipt Date: 20120109
  Transmission Date: 20120608
  Serious: No
  Sender: FDA-Public Use
  Company Number: US-PFIZER INC-2011298556

PATIENT
  Sex: Male

DRUGS (1)
  1. XALKORI [Suspect]
     Indication: LUNG NEOPLASM MALIGNANT
     Dosage: 250 MG, 2X/DAY
     Dates: start: 20111031

REACTIONS (6)
  - OCULAR DISCOMFORT [None]
  - JOINT SWELLING [None]
  - DREAMY STATE [None]
  - OEDEMA PERIPHERAL [None]
  - DYSGEUSIA [None]
  - DIZZINESS [None]
